FAERS Safety Report 5245077-9 (Version None)
Quarter: 2007Q1

REPORT INFORMATION
  Report Type: 
  Country: None (occurrence: None)
  Receive Date: 20070223
  Receipt Date: 20070212
  Transmission Date: 20070707
  Serious: Yes (Other)
  Sender: FDA-Public Use
  Company Number: PHEH2007US01986

PATIENT
  Age: 69 Year
  Sex: Female

DRUGS (8)
  1. ENABLEX [Suspect]
     Indication: HYPERTONIC BLADDER
     Dosage: 15 MG, QD
     Dates: start: 20070201
  2. TRICOR [Concomitant]
     Dosage: 145 MG, UNK
  3. RESTORIL [Concomitant]
     Dosage: 30 MG, UNK
  4. KLONOPIN [Concomitant]
     Dosage: 2 MG, UNK
  5. SINEMET [Concomitant]
  6. ARIMIDEX [Concomitant]
     Dates: start: 20061101
  7. LOTREL [Concomitant]
  8. ASPIRIN [Concomitant]
     Dosage: 81 MG, UNK

REACTIONS (4)
  - BLOOD GLUCOSE DECREASED [None]
  - FATIGUE [None]
  - HYPERHIDROSIS [None]
  - PRESYNCOPE [None]
